FAERS Safety Report 9111691 (Version 1)
Quarter: 2013Q1

REPORT INFORMATION
  Report Type: Spontaneous
  Country: US (occurrence: US)
  Receive Date: 20130219
  Receipt Date: 20130219
  Transmission Date: 20140127
  Serious: No
  Sender: FDA-Public Use
  Company Number: US-BRISTOL-MYERS SQUIBB COMPANY-17197237

PATIENT
  Age: 66 Year
  Sex: Female

DRUGS (9)
  1. ABATACEPT SUBQ INJECTION 125MG/ML [Suspect]
  2. METHOTREXATE [Concomitant]
  3. NEXIUM [Concomitant]
  4. CYMBALTA [Concomitant]
  5. LUMIGAN [Concomitant]
  6. PREMPRO [Concomitant]
     Dosage: 1DF:625/5 MG
  7. HYDROCODONE [Concomitant]
  8. MELOXICAM [Concomitant]
  9. TAMSULOSIN [Concomitant]

REACTIONS (1)
  - Drug dose omission [Unknown]
